FAERS Safety Report 19055989 (Version 1)
Quarter: 2021Q1

REPORT INFORMATION
  Report Type: Spontaneous
  Country: US (occurrence: US)
  Receive Date: 20210324
  Receipt Date: 20210324
  Transmission Date: 20210420
  Serious: No
  Sender: FDA-Public Use
  Company Number: None

PATIENT
  Age: 36 Year
  Sex: Male
  Weight: 68.6 kg

DRUGS (2)
  1. PROGRAF [Suspect]
     Active Substance: TACROLIMUS
     Dosage: ?          OTHER FREQUENCY:ONCE;?
     Route: 048
     Dates: start: 20210130, end: 20210130
  2. TACROLIMUS. [Suspect]
     Active Substance: TACROLIMUS
     Dosage: ?          OTHER FREQUENCY:ONCE;?
     Route: 048
     Dates: start: 20210213, end: 20210213

REACTIONS (1)
  - Death [None]

NARRATIVE: CASE EVENT DATE: 20210220
